FAERS Safety Report 16677778 (Version 1)
Quarter: 2019Q3

REPORT INFORMATION
  Report Type: Report from Study
  Country: US (occurrence: US)
  Receive Date: 20190807
  Receipt Date: 20190807
  Transmission Date: 20191004
  Serious: Yes (Death)
  Sender: FDA-Public Use
  Company Number: US-TAIHO ONCOLOGY  INC-EU-2019-02610

PATIENT
  Age: 67 Year
  Sex: Female

DRUGS (7)
  1. VITAMIN D [Concomitant]
     Active Substance: VITAMIN D NOS
     Dosage: NI
  2. ASPIRIN. [Concomitant]
     Active Substance: ASPIRIN
     Dosage: NI
  3. LONSURF [Suspect]
     Active Substance: TIPIRACIL HYDROCHLORIDE\TRIFLURIDINE
     Indication: COLORECTAL CANCER METASTATIC
     Dosage: CURRENT CYCLE UNKNOWN
     Route: 048
     Dates: start: 20181112
  4. MAGNESIUM [Concomitant]
     Active Substance: MAGNESIUM
     Dosage: NI
  5. MULTIVITAMIN [Concomitant]
     Active Substance: VITAMINS
     Dosage: NI
  6. CLARITIN [Concomitant]
     Active Substance: LORATADINE
  7. IRON [Concomitant]
     Active Substance: IRON
     Dosage: NI

REACTIONS (1)
  - Death [Fatal]

NARRATIVE: CASE EVENT DATE: 20190726
